FAERS Safety Report 12355180 (Version 1)
Quarter: 2016Q2

REPORT INFORMATION
  Report Type: Spontaneous
  Country: US (occurrence: None)
  Receive Date: 20160510
  Receipt Date: 20160510
  Transmission Date: 20160815
  Serious: Yes (Life-Threatening, Disabling)
  Sender: FDA-Public Use
  Company Number: None

PATIENT
  Age: 30 Year
  Sex: Female
  Weight: 79.38 kg

DRUGS (11)
  1. VENLAFAXINE ER [Suspect]
     Active Substance: VENLAFAXINE HYDROCHLORIDE
     Indication: MAJOR DEPRESSION
     Route: 048
     Dates: start: 20000606, end: 20151025
  2. PHYTISONE (ADRENAL SUPPORT) [Concomitant]
  3. HTP [Concomitant]
  4. THYROCSIN [Concomitant]
  5. WELLBUTRIN XL [Concomitant]
     Active Substance: BUPROPION HYDROCHLORIDE
  6. D-5000 [Concomitant]
  7. OMEGA 3 [Concomitant]
     Active Substance: OMEGA-3 FATTY ACIDS
  8. YASMIN [Concomitant]
     Active Substance: DROSPIRENONE\ETHINYL ESTRADIOL
  9. EFFEXOR XR [Concomitant]
     Active Substance: VENLAFAXINE HYDROCHLORIDE
  10. DIGESTZYMES [Concomitant]
  11. B-50 COMPLEX [Concomitant]

REACTIONS (31)
  - Chills [None]
  - Confusional state [None]
  - Nausea [None]
  - Anxiety [None]
  - Suicidal ideation [None]
  - Hallucination [None]
  - Tremor [None]
  - Fatigue [None]
  - Insomnia [None]
  - Diarrhoea [None]
  - Fear [None]
  - Crying [None]
  - Drug withdrawal syndrome [None]
  - Night sweats [None]
  - Slow speech [None]
  - Paraesthesia [None]
  - Diplopia [None]
  - Abdominal pain upper [None]
  - Impaired driving ability [None]
  - Disturbance in attention [None]
  - Drug intolerance [None]
  - Anger [None]
  - Frustration tolerance decreased [None]
  - Mood swings [None]
  - Hypersensitivity [None]
  - Drug ineffective [None]
  - Hot flush [None]
  - Hypoaesthesia [None]
  - Cerebral disorder [None]
  - Vertigo [None]
  - Vision blurred [None]

NARRATIVE: CASE EVENT DATE: 20151227
